FAERS Safety Report 25289666 (Version 2)
Quarter: 2025Q2

REPORT INFORMATION
  Report Type: Report from Study
  Country: AR (occurrence: AR)
  Receive Date: 20250509
  Receipt Date: 20250516
  Transmission Date: 20250717
  Serious: No
  Sender: ABBVIE
  Company Number: AR-ABBVIE-6269308

PATIENT
  Sex: Male

DRUGS (1)
  1. RINVOQ [Suspect]
     Active Substance: UPADACITINIB
     Indication: Colitis ulcerative
     Dosage: RINVOQ 30MG X 30 TABLETS
     Route: 048
     Dates: start: 20240514

REACTIONS (1)
  - Haemorrhage [Unknown]
